FAERS Safety Report 16775932 (Version 7)
Quarter: 2020Q2

REPORT INFORMATION
  Report Type: Spontaneous
  Country: US (occurrence: US)
  Receive Date: 20190905
  Receipt Date: 20200619
  Transmission Date: 20200713
  Serious: No
  Sender: FDA-Public Use
  Company Number: US-PFIZER INC-2019379169

PATIENT
  Age: 68 Year
  Sex: Female
  Weight: 68 kg

DRUGS (6)
  1. XELJANZ [Suspect]
     Active Substance: TOFACITINIB CITRATE
     Indication: COLITIS ULCERATIVE
     Dosage: 10 MG, 2X/DAY
     Route: 048
     Dates: start: 20191115
  2. BUDESONIDE. [Concomitant]
     Active Substance: BUDESONIDE
     Dosage: UNK
     Dates: start: 20191215, end: 20200214
  3. PREDNISONE. [Concomitant]
     Active Substance: PREDNISONE
     Dosage: UNK
  4. BUDESONIDE. [Concomitant]
     Active Substance: BUDESONIDE
     Dosage: 6 MG, FOR 30 DAYS
  5. BUDESONIDE. [Concomitant]
     Active Substance: BUDESONIDE
     Indication: STEROID THERAPY
     Dosage: 9MG FOR 30 DAYS
     Dates: start: 20191123, end: 20191222
  6. BUDESONIDE. [Concomitant]
     Active Substance: BUDESONIDE
     Dosage: 3 MG FOR 30 DAYS

REACTIONS (13)
  - Hypoacusis [Recovered/Resolved]
  - Nail disorder [Recovering/Resolving]
  - Drug ineffective [Recovered/Resolved]
  - Hot flush [Not Recovered/Not Resolved]
  - Condition aggravated [Not Recovered/Not Resolved]
  - Osteopenia [Unknown]
  - Muscle spasms [Recovered/Resolved]
  - Blood cholesterol increased [Not Recovered/Not Resolved]
  - Dizziness [Unknown]
  - Heart rate abnormal [Unknown]
  - Laryngitis [Recovered/Resolved]
  - Alopecia [Unknown]
  - Lymphadenopathy [Unknown]

NARRATIVE: CASE EVENT DATE: 201911
